FAERS Safety Report 14175690 (Version 1)
Quarter: 2017Q4

REPORT INFORMATION
  Report Type: Spontaneous
  Country: US (occurrence: None)
  Receive Date: 20171109
  Receipt Date: 20171109
  Transmission Date: 20180321
  Serious: Yes (Hospitalization)
  Sender: FDA-Public Use
  Company Number: None

PATIENT
  Age: 68 Year
  Sex: Male

DRUGS (8)
  1. AMIODARONE [Concomitant]
     Active Substance: AMIODARONE
  2. ALLOPURINOL. [Concomitant]
     Active Substance: ALLOPURINOL
  3. REBIF [Suspect]
     Active Substance: INTERFERON BETA-1A
     Indication: MULTIPLE SCLEROSIS
     Dosage: 44MCG/0.5ML
     Route: 058
     Dates: start: 20071220
  4. AMANTADINE. [Concomitant]
     Active Substance: AMANTADINE HYDROCHLORIDE
  5. MATZIM [Concomitant]
     Active Substance: DILTIAZEM
  6. VALSARTAN. [Concomitant]
     Active Substance: VALSARTAN
  7. ELIQUIS [Concomitant]
     Active Substance: APIXABAN
  8. LIPITOR [Concomitant]
     Active Substance: ATORVASTATIN CALCIUM

REACTIONS (2)
  - Hospitalisation [None]
  - Therapy cessation [None]

NARRATIVE: CASE EVENT DATE: 20171007
